FAERS Safety Report 4689559-7 (Version None)
Quarter: 2005Q2

REPORT INFORMATION
  Report Type: 
  Country: None (occurrence: None)
  Receive Date: 20050613
  Receipt Date: 20050613
  Transmission Date: 20051028
  Serious: Yes (Hospitalization)
  Sender: FDA-Public Use
  Company Number: None

PATIENT
  Age: 72 Year
  Sex: Female
  Weight: 88 kg

DRUGS (2)
  1. COUMADIN [Suspect]
     Indication: DEEP VEIN THROMBOSIS
     Dosage: 5 MG DAILY AND PRN
     Dates: start: 20050301, end: 20050401
  2. COUMADIN [Suspect]
     Indication: PULMONARY EMBOLISM
     Dosage: 5 MG DAILY AND PRN
     Dates: start: 20050301, end: 20050401

REACTIONS (5)
  - CONTUSION [None]
  - EPISTAXIS [None]
  - HAEMATURIA [None]
  - INTERNATIONAL NORMALISED RATIO INCREASED [None]
  - RECTAL HAEMORRHAGE [None]
